FAERS Safety Report 5552553-8 (Version None)
Quarter: 2007Q4

REPORT INFORMATION
  Report Type: 
  Country: None (occurrence: None)
  Receive Date: 20071207
  Receipt Date: 20071126
  Transmission Date: 20080405
  Serious: Yes (Hospitalization)
  Sender: FDA-Public Use
  Company Number: B0498288A

PATIENT
  Age: 63 Year
  Sex: Male

DRUGS (7)
  1. AMOXICILLIN TRIHYDRATE [Suspect]
     Indication: PROPHYLAXIS
     Dosage: 500 MG/ THREE TIMES PER DAY / ORAL
     Route: 048
  2. IBUPROFEN [Concomitant]
  3. TAMSULOSIN HCL [Concomitant]
  4. ASCORBIC ACID [Concomitant]
  5. CALCIUM CARBONATE [Concomitant]
  6. VITAMIN D [Concomitant]
  7. LORATADINE [Concomitant]

REACTIONS (6)
  - CLOSTRIDIAL INFECTION [None]
  - ENTEROCOLITIS HAEMORRHAGIC [None]
  - INTESTINAL ISCHAEMIA [None]
  - NEUTROPHIL COUNT INCREASED [None]
  - PNEUMATOSIS [None]
  - WHITE BLOOD CELL COUNT INCREASED [None]
